FAERS Safety Report 12882978 (Version 1)
Quarter: 2016Q4

REPORT INFORMATION
  Report Type: Spontaneous
  Country: US (occurrence: US)
  Receive Date: 20161025
  Receipt Date: 20161025
  Transmission Date: 20170207
  Serious: No
  Sender: FDA-Public Use
  Company Number: US-SA-2016SA060389

PATIENT
  Age: 6 Month
  Sex: Female
  Weight: 5.21 kg

DRUGS (1)
  1. LUMIZYME [Suspect]
     Active Substance: ALGLUCOSIDASE ALFA
     Route: 041
     Dates: end: 201603

REACTIONS (2)
  - Infection [Unknown]
  - Pyrexia [Unknown]
